FAERS Safety Report 4869362-5 (Version None)
Quarter: 2005Q4

REPORT INFORMATION
  Report Type: 
  Country: None (occurrence: None)
  Receive Date: 20051230
  Receipt Date: 20051206
  Transmission Date: 20060501
  Serious: Yes (Other)
  Sender: FDA-Public Use
  Company Number: 2005AP06601

PATIENT
  Age: 82 Year
  Sex: Male

DRUGS (4)
  1. ZOLADEX [Suspect]
     Indication: PROSTATE CANCER
     Route: 058
     Dates: start: 20031101
  2. DIOVAN [Suspect]
     Indication: BLOOD PRESSURE INCREASED
     Route: 048
  3. TENORMIN [Concomitant]
     Indication: BLOOD PRESSURE INCREASED
     Dates: end: 20031101
  4. AMLODIPINE BESYLATE [Concomitant]
     Indication: BLOOD PRESSURE INCREASED

REACTIONS (1)
  - APLASIA PURE RED CELL [None]
